FAERS Safety Report 24653756 (Version 2)
Quarter: 2024Q4

REPORT INFORMATION
  Report Type: Spontaneous
  Country: US (occurrence: US)
  Receive Date: 20241122
  Receipt Date: 20241122
  Transmission Date: 20250115
  Serious: No
  Sender: NOVO NORDISK
  Company Number: US-NOVOPROD-1222765

PATIENT
  Sex: Female

DRUGS (2)
  1. FIASP [Suspect]
     Active Substance: INSULIN ASPART
     Indication: Diabetes mellitus
     Dosage: 4-6 UNITS DAILY
     Route: 058
     Dates: start: 202402
  2. TRESIBA [Suspect]
     Active Substance: INSULIN DEGLUDEC
     Indication: Diabetes mellitus
     Dosage: 9 UNITS DAILY
     Route: 058
     Dates: start: 202402

REACTIONS (6)
  - Insomnia [Unknown]
  - Product communication issue [Unknown]
  - Drug ineffective [Unknown]
  - Blood glucose increased [Unknown]
  - Injection site pain [Unknown]
  - Blood glucose decreased [Unknown]
